FAERS Safety Report 4368437-7 (Version None)
Quarter: 2004Q2

REPORT INFORMATION
  Report Type: 
  Country: None (occurrence: None)
  Receive Date: 20040602
  Receipt Date: 20040115
  Transmission Date: 20050107
  Serious: No
  Sender: FDA-Public Use
  Company Number: US-GLAXOSMITHKLINE-A0493488A

PATIENT
  Age: 36 Year
  Sex: Female

DRUGS (2)
  1. AUGMENTIN [Suspect]
     Indication: TONSILLECTOMY
     Dosage: 875MG SINGLE DOSE
     Route: 048
     Dates: start: 20040114, end: 20040114
  2. TYLENOL [Concomitant]

REACTIONS (3)
  - BACK PAIN [None]
  - BLOOD URINE PRESENT [None]
  - FLANK PAIN [None]
